FAERS Safety Report 17710638 (Version 1)
Quarter: 2020Q2

REPORT INFORMATION
  Report Type: Spontaneous
  Country: DK (occurrence: DK)
  Receive Date: 20200427
  Receipt Date: 20200427
  Transmission Date: 20200714
  Serious: Yes (Hospitalization)
  Sender: FDA-Public Use
  Company Number: NVSC2019DK057444

PATIENT
  Age: 52 Year
  Sex: Male
  Weight: 94.7 kg

DRUGS (17)
  1. DEXAMETHASONE. [Suspect]
     Active Substance: DEXAMETHASONE
     Indication: PLASMA CELL MYELOMA
     Dosage: 40 MG
     Route: 048
     Dates: start: 20190502, end: 20190704
  2. VELCADE [Suspect]
     Active Substance: BORTEZOMIB
     Indication: PLASMA CELL MYELOMA
     Dosage: 2.88 MG
     Route: 058
     Dates: start: 20190502, end: 201907
  3. VELCADE [Suspect]
     Active Substance: BORTEZOMIB
     Dosage: 2.88 MG, CYCLIC
     Route: 058
     Dates: start: 20190712
  4. PARACETAMOL [Concomitant]
     Active Substance: ACETAMINOPHEN
     Indication: PAIN
     Dosage: 1000 MG
     Route: 048
  5. ACETYLSALICYLIC ACID [Concomitant]
     Active Substance: ASPIRIN
     Indication: THROMBOSIS PROPHYLAXIS
     Dosage: 75 MG, QD
     Route: 048
     Dates: start: 20190502, end: 20190524
  6. CLINDAMYCIN. [Concomitant]
     Active Substance: CLINDAMYCIN
     Indication: HORDEOLUM
     Dosage: 1800 MG, QD
     Route: 048
     Dates: start: 20190614, end: 20190620
  7. INNOHEP [Concomitant]
     Active Substance: TINZAPARIN SODIUM
     Indication: DEEP VEIN THROMBOSIS
     Dosage: 18000 IU, QD
     Route: 058
     Dates: start: 20190523
  8. LENALIDOMIDE [Suspect]
     Active Substance: LENALIDOMIDE
     Indication: PLASMA CELL MYELOMA
     Dosage: 25 MG
     Route: 048
     Dates: start: 20190502, end: 20190614
  9. DEXAMETHASONE. [Suspect]
     Active Substance: DEXAMETHASONE
     Dosage: UNK
     Route: 048
     Dates: start: 20190712, end: 20190730
  10. PANTOLOC [Concomitant]
     Active Substance: PANTOPRAZOLE SODIUM
     Indication: GASTROOESOPHAGEAL REFLUX DISEASE
     Dosage: 20 MG, QD
     Route: 048
     Dates: start: 20190531
  11. ACYCLOVIR. [Concomitant]
     Active Substance: ACYCLOVIR
     Dosage: 800 MG, QD
     Route: 048
     Dates: start: 20190627
  12. DEXAMETHASONE. [Suspect]
     Active Substance: DEXAMETHASONE
     Dosage: UNK
     Route: 048
     Dates: start: 20190802
  13. PARACETAMOL [Concomitant]
     Active Substance: ACETAMINOPHEN
     Indication: DEEP VEIN THROMBOSIS
     Dosage: 2000 MG, QD
     Route: 048
     Dates: start: 20190523
  14. PARACETAMOL [Concomitant]
     Active Substance: ACETAMINOPHEN
     Indication: HORDEOLUM
     Dosage: UNK
     Route: 065
  15. MAGNESIUM OXIDE. [Concomitant]
     Active Substance: MAGNESIUM OXIDE
     Indication: CONSTIPATION
     Dosage: FREQUENCY: AS NECESSARY
     Route: 048
     Dates: start: 20190520
  16. CHLORAMPHENICOL [Concomitant]
     Active Substance: CHLORAMPHENICOL
     Indication: HORDEOLUM
     Dosage: 3 ML, QD
     Route: 065
     Dates: start: 20190606
  17. ACYCLOVIR. [Concomitant]
     Active Substance: ACYCLOVIR
     Indication: HERPES ZOSTER
     Dosage: 800 MG, QD
     Route: 048
     Dates: start: 20190502, end: 20190614

REACTIONS (2)
  - Non-alcoholic steatohepatitis [Recovered/Resolved with Sequelae]
  - Hepatic function abnormal [Not Recovered/Not Resolved]

NARRATIVE: CASE EVENT DATE: 20190614
